FAERS Safety Report 18417928 (Version 1)
Quarter: 2020Q4

REPORT INFORMATION
  Report Type: Report from Study
  Country: None (occurrence: US)
  Receive Date: 20201023
  Receipt Date: 20201023
  Transmission Date: 20210114
  Serious: Yes (Hospitalization, Other)
  Sender: FDA-Public Use
  Company Number: US-ABBVIE-20K-163-3614851-00

PATIENT
  Sex: Female

DRUGS (1)
  1. HUMIRA [Suspect]
     Active Substance: ADALIMUMAB
     Indication: RHEUMATOID ARTHRITIS
     Route: 058
     Dates: end: 202009

REACTIONS (8)
  - Hospitalisation [Unknown]
  - Hypotension [Unknown]
  - Large intestinal stenosis [Unknown]
  - Acute kidney injury [Unknown]
  - Large intestine polyp [Unknown]
  - Diverticulitis [Unknown]
  - Blood potassium decreased [Unknown]
  - Haemoglobin decreased [Unknown]

NARRATIVE: CASE EVENT DATE: 2020
